FAERS Safety Report 17293038 (Version 1)
Quarter: 2020Q1

REPORT INFORMATION
  Report Type: Spontaneous
  Country: US (occurrence: US)
  Receive Date: 20200102
  Receipt Date: 20200102
  Transmission Date: 20200409
  Serious: No
  Sender: FDA-Public Use
  Company Number: None

PATIENT
  Age: 66 Year
  Sex: Male

DRUGS (1)
  1. ZYTIGA [Suspect]
     Active Substance: ABIRATERONE ACETATE
     Route: 048

REACTIONS (5)
  - Urinary tract infection [None]
  - Urinary incontinence [None]
  - Sepsis [None]
  - Oedema [None]
  - Dehydration [None]

NARRATIVE: CASE EVENT DATE: 20200102
